FAERS Safety Report 7908907-5 (Version None)
Quarter: 2011Q4

REPORT INFORMATION
  Report Type: 
  Country: None (occurrence: None)
  Receive Date: 20111111
  Receipt Date: 20111103
  Transmission Date: 20120403
  Serious: Yes (Hospitalization)
  Sender: FDA-Public Use
  Company Number: US-BRISTOL-MYERS SQUIBB COMPANY-16213811

PATIENT
  Age: 48 Year
  Sex: Female
  Weight: 73 kg

DRUGS (2)
  1. METHOTREXATE [Suspect]
  2. ORENCIA [Suspect]
     Dosage: LITTLE OVER A YEAR.

REACTIONS (7)
  - DYSPNOEA [None]
  - FATIGUE [None]
  - NAUSEA [None]
  - CHEST PAIN [None]
  - RHINORRHOEA [None]
  - HEADACHE [None]
  - BACK PAIN [None]
